FAERS Safety Report 9477339 (Version 1)
Quarter: 2013Q3

REPORT INFORMATION
  Report Type: Spontaneous
  Country: TR (occurrence: TR)
  Receive Date: 20130826
  Receipt Date: 20130826
  Transmission Date: 20140515
  Serious: Yes (Hospitalization)
  Sender: FDA-Public Use
  Company Number: TR-ABBOTT-13P-161-1137494-00

PATIENT
  Age: 41 Year
  Sex: Male
  Weight: 41 kg

DRUGS (4)
  1. HUMIRA [Suspect]
     Indication: CROHN^S DISEASE
     Route: 058
     Dates: start: 20130117
  2. INH [Concomitant]
     Indication: CROHN^S DISEASE
     Route: 048
     Dates: start: 20130117
  3. PENTASA [Concomitant]
     Indication: CROHN^S DISEASE
     Route: 048
     Dates: start: 20120917
  4. FOLBIOL [Concomitant]
     Indication: CROHN^S DISEASE
     Route: 048
     Dates: start: 20130506

REACTIONS (1)
  - Blood albumin decreased [Not Recovered/Not Resolved]
